FAERS Safety Report 21651685 (Version 1)
Quarter: 2022Q4

REPORT INFORMATION
  Report Type: Spontaneous
  Country: US (occurrence: None)
  Receive Date: 20221123
  Receipt Date: 20221123
  Transmission Date: 20230113
  Serious: No
  Sender: FDA-Public Use
  Company Number: None

PATIENT
  Age: 62 Year
  Sex: Female
  Weight: 85.28 kg

DRUGS (22)
  1. LENALIDOMIDE [Suspect]
     Active Substance: LENALIDOMIDE
     Indication: Plasma cell myeloma
     Dosage: OTHER FREQUENCY : 21D ON 2W OFF;?
     Route: 048
     Dates: start: 202209
  2. ACYCLOVIR [Concomitant]
     Active Substance: ACYCLOVIR
  3. ATORVASTATIN [Concomitant]
     Active Substance: ATORVASTATIN
  4. B12-ACTIVE [Concomitant]
  5. BACLOFEN [Concomitant]
     Active Substance: BACLOFEN
  6. BITOIN [Concomitant]
  7. BLACK SEED OIL [Concomitant]
  8. CLOPIDOGREL [Concomitant]
     Active Substance: CLOPIDOGREL BISULFATE
  9. DULOXETINE [Concomitant]
     Active Substance: DULOXETINE
  10. ELIQUIS [Concomitant]
     Active Substance: APIXABAN
  11. FLAXSEED [Concomitant]
     Active Substance: FLAX SEED
  12. GABAPENTIN [Concomitant]
     Active Substance: GABAPENTIN
  13. LASIX [Concomitant]
     Active Substance: FUROSEMIDE
  14. METOPROLOL [Concomitant]
     Active Substance: METOPROLOL
  15. VITAMINS [Concomitant]
     Active Substance: VITAMINS
  16. OMEPRAZOLE [Concomitant]
     Active Substance: OMEPRAZOLE
  17. POTASSIUM CHLORIDE [Concomitant]
     Active Substance: POTASSIUM CHLORIDE
  18. VALSARTAN [Concomitant]
     Active Substance: VALSARTAN
  19. VITAMIN B COMPLEX-C [Concomitant]
  20. VITAMIN C ROSE HIPS [Concomitant]
  21. VITANMIN D3 [Concomitant]
  22. ZINC 220 [Concomitant]

REACTIONS (3)
  - Weight decreased [None]
  - Decreased appetite [None]
  - Neuropathy peripheral [None]
